FAERS Safety Report 8120713-8 (Version None)
Quarter: 2012Q1

REPORT INFORMATION
  Report Type: 
  Country: None (occurrence: None)
  Receive Date: 20120207
  Receipt Date: 20120130
  Transmission Date: 20120608
  Serious: Yes (Other)
  Sender: FDA-Public Use
  Company Number: US-ASTRAZENECA-2012SE06309

PATIENT
  Age: 85 Year
  Sex: Male
  Weight: 81.6 kg

DRUGS (9)
  1. METOPROLOL TARTRATE [Concomitant]
  2. TENAZOSIN [Concomitant]
     Indication: PROSTATIC DISORDER
  3. ASPIRIN [Concomitant]
     Dosage: QD
  4. HYDROCHLOROTHIAZIDE [Concomitant]
  5. LISINOPRIL [Concomitant]
  6. VITAMIN B-12 [Concomitant]
  7. SYMBICORT [Suspect]
     Indication: CHRONIC OBSTRUCTIVE PULMONARY DISEASE
     Dosage: TWO PUFFS, TWICE DAILY
     Route: 055
  8. GLYBERAD [Concomitant]
     Dosage: BID
  9. SIMVASTATIN [Concomitant]

REACTIONS (7)
  - LACRIMATION INCREASED [None]
  - EYE DISORDER [None]
  - EYE PRURITUS [None]
  - VISUAL IMPAIRMENT [None]
  - BODY HEIGHT DECREASED [None]
  - AORTIC ANEURYSM [None]
  - DRUG INEFFECTIVE [None]
